FAERS Safety Report 19773510 (Version 1)
Quarter: 2021Q3

REPORT INFORMATION
  Report Type: Spontaneous
  Country: GB (occurrence: GB)
  Receive Date: 20210901
  Receipt Date: 20210901
  Transmission Date: 20211014
  Serious: Yes (Other)
  Sender: FDA-Public Use
  Company Number: GB-PFIZER INC-202101093077

PATIENT
  Age: 74 Year
  Sex: Female

DRUGS (15)
  1. FOLIC ACID. [Concomitant]
     Active Substance: FOLIC ACID
     Dosage: 1 DF, EVERY 3 WEEKS
     Dates: start: 20210428
  2. IBUPROFEN. [Concomitant]
     Active Substance: IBUPROFEN
     Dosage: 1 DF, 3X/DAY
     Dates: start: 20210428, end: 20210608
  3. ORAMORPH [Concomitant]
     Active Substance: MORPHINE SULFATE
     Dosage: 10MG (5ML) TWICE DAILY WHEN REQUIRED
     Dates: start: 20210428, end: 20210608
  4. ADCAL [CALCIUM CARBONATE] [Concomitant]
     Dosage: 1 DF, 2X/DAY
     Dates: start: 20210428, end: 20210608
  5. COSMOCOL [Concomitant]
     Indication: CONSTIPATION
     Dosage: 1?2 SACHETS TWICE DAILY WHEN REQUIRED
     Dates: start: 20210812
  6. DAKTACORT [Concomitant]
     Active Substance: HYDROCORTISONE\MICONAZOLE NITRATE
     Dosage: 1 DF, 2X/DAY
     Dates: start: 20210730, end: 20210806
  7. SENNA [SENNOSIDE A+B] [Concomitant]
     Active Substance: SENNOSIDES A AND B
     Dosage: 2 DF, AS NEEDED
     Dates: start: 20210428
  8. SULFASALAZINE. [Suspect]
     Active Substance: SULFASALAZINE
     Dosage: 500 MG
     Dates: start: 20210319
  9. FUROSEMIDE. [Concomitant]
     Active Substance: FUROSEMIDE
     Dosage: 1 DF, 1X/DAY
     Dates: start: 20210428, end: 20210608
  10. MEPTAZINOL [Concomitant]
     Active Substance: MEPTAZINOL HYDROCHLORIDE
     Dosage: 1 DF, 3X/DAY
     Dates: start: 20210428
  11. METFORMIN [Concomitant]
     Active Substance: METFORMIN HYDROCHLORIDE
     Dosage: 1 DF, 2X/DAY
     Dates: start: 20210717
  12. CALCIUM CARBONATE. [Concomitant]
     Active Substance: CALCIUM CARBONATE
     Dosage: 1 DF, 1X/DAY
     Dates: start: 20210717
  13. MICONAZOLE. [Concomitant]
     Active Substance: MICONAZOLE
     Dosage: 1 DF, 2X/DAY
     Dates: start: 20210719, end: 20210726
  14. OMEPRAZOLE. [Concomitant]
     Active Substance: OMEPRAZOLE
     Dosage: 1 DF, 1X/DAY
     Dates: start: 20210428
  15. PARACETAMOL [Concomitant]
     Active Substance: ACETAMINOPHEN
     Dosage: 2 DF, 4X/DAY
     Dates: start: 20210428

REACTIONS (1)
  - Abdominal discomfort [Recovered/Resolved]
